FAERS Safety Report 25303540 (Version 2)
Quarter: 2025Q2

REPORT INFORMATION
  Report Type: Report from Study
  Country: US (occurrence: US)
  Receive Date: 20250513
  Receipt Date: 20250609
  Transmission Date: 20250716
  Serious: Yes (Hospitalization)
  Sender: MALLINCKRODT
  Company Number: US-MALLINCKRODT-MNK202502772

PATIENT
  Sex: Female

DRUGS (2)
  1. CORTICOTROPIN [Suspect]
     Active Substance: CORTICOTROPIN
     Indication: Pulmonary sarcoidosis
  2. CORTICOTROPIN [Suspect]
     Active Substance: CORTICOTROPIN
     Indication: Sarcoidosis

REACTIONS (7)
  - Hallucination [Recovered/Resolved]
  - Restless legs syndrome [Recovered/Resolved]
  - Memory impairment [Unknown]
  - Malaise [Unknown]
  - Infection [Unknown]
  - Expired product administered [Unknown]
  - Product dose omission issue [Unknown]
